FAERS Safety Report 10617489 (Version 1)
Quarter: 2014Q4

REPORT INFORMATION
  Report Type: Spontaneous
  Country: US (occurrence: US)
  Receive Date: 20141201
  Receipt Date: 20141201
  Transmission Date: 20150529
  Serious: No
  Sender: FDA-Public Use
  Company Number: US-ASTRAZENECA-2014SE91259

PATIENT
  Age: 90 Year
  Sex: Female
  Weight: 72.6 kg

DRUGS (1)
  1. NEXIUM 24HR [Suspect]
     Active Substance: ESOMEPRAZOLE MAGNESIUM
     Route: 048
     Dates: start: 20141119

REACTIONS (1)
  - Nocturia [Unknown]

NARRATIVE: CASE EVENT DATE: 20141119
